FAERS Safety Report 5549523-2 (Version None)
Quarter: 2007Q4

REPORT INFORMATION
  Report Type: 
  Country: None (occurrence: None)
  Receive Date: 20071128
  Receipt Date: 20070901
  Transmission Date: 20080405
  Serious: Yes (Other)
  Sender: FDA-Public Use
  Company Number: 2006139350

PATIENT
  Age: 69 Year
  Sex: Male
  Weight: 89.8 kg

DRUGS (15)
  1. EXUBERA [Suspect]
     Indication: TYPE 2 DIABETES MELLITUS
     Dosage: 3 MG (1 MG, 3 IN 1 D), INHALATION
     Route: 055
     Dates: start: 20061001
  2. EXUBERA [Suspect]
  3. EXUBERA [Suspect]
  4. TOPROL-XL [Concomitant]
  5. FUROSEMIDE [Concomitant]
  6. ACETYLSALICYLIC ACID SRT [Concomitant]
  7. ACCUPRIL (QUINAPRIL HYDROCLORIDE) [Concomitant]
  8. VYTORIN [Concomitant]
  9. PRILOSEC [Concomitant]
  10. TRICOR [Concomitant]
  11. GLIPIZIDE [Concomitant]
  12. OMACOR [Concomitant]
  13. GLIMEPIRIDE [Concomitant]
  14. QUININE (QUININE) [Concomitant]
  15. CYMBALTA [Concomitant]

REACTIONS (1)
  - BLOOD GLUCOSE INCREASED [None]
